FAERS Safety Report 13193712 (Version 3)
Quarter: 2017Q1

REPORT INFORMATION
  Report Type: Report from Study
  Country: CO (occurrence: CO)
  Receive Date: 20170207
  Receipt Date: 20170221
  Transmission Date: 20170428
  Serious: Yes (Hospitalization)
  Sender: FDA-Public Use
  Company Number: CO-JNJFOC-20170202437

PATIENT
  Age: 24 Year
  Sex: Male
  Weight: 68 kg

DRUGS (2)
  1. RISPERDAL CONSTA [Suspect]
     Active Substance: RISPERIDONE
     Indication: SCHIZOPHRENIA
     Route: 030
     Dates: start: 20170216
  2. RISPERDAL CONSTA [Suspect]
     Active Substance: RISPERIDONE
     Indication: SCHIZOPHRENIA
     Route: 030
     Dates: start: 20130115, end: 20170201

REACTIONS (4)
  - Aggression [Recovering/Resolving]
  - Hostility [Recovering/Resolving]
  - Hallucination [Recovering/Resolving]
  - Persecutory delusion [Recovering/Resolving]

NARRATIVE: CASE EVENT DATE: 20170121
